FAERS Safety Report 8157955-1 (Version None)
Quarter: 2012Q1

REPORT INFORMATION
  Report Type: 
  Country: None (occurrence: None)
  Receive Date: 20120222
  Receipt Date: 20120213
  Transmission Date: 20120608
  Serious: Yes (Other)
  Sender: FDA-Public Use
  Company Number: PHHY2012BR013585

PATIENT
  Age: 53 Year
  Sex: Female

DRUGS (1)
  1. EXFORGE HCT [Suspect]
     Indication: HYPERTENSION
     Dosage: ONE TABLET (160/5/12.5 MG) A DAY

REACTIONS (5)
  - SWELLING FACE [None]
  - DYSPNOEA [None]
  - ASPHYXIA [None]
  - LOCAL SWELLING [None]
  - BLOOD PRESSURE INADEQUATELY CONTROLLED [None]
